FAERS Safety Report 8809640 (Version 2)
Quarter: 2014Q3

REPORT INFORMATION
  Report Type: Report from Study
  Country: US (occurrence: US)
  Receive Date: 20120926
  Receipt Date: 20140903
  Transmission Date: 20150326
  Serious: Yes (Hospitalization, Other)
  Sender: FDA-Public Use
  Company Number: US-ROCHE-1127960

PATIENT
  Age: 51 Year
  Sex: Female
  Weight: 54.55 kg

DRUGS (8)
  1. AVASTIN [Suspect]
     Active Substance: BEVACIZUMAB
     Indication: BREAST CANCER FEMALE
     Route: 065
  2. AVASTIN [Suspect]
     Active Substance: BEVACIZUMAB
     Indication: BREAST CANCER METASTATIC
  3. ABRAXANE [Concomitant]
     Active Substance: PACLITAXEL
  4. CISPLATIN. [Concomitant]
     Active Substance: CISPLATIN
  5. ADRIAMYCIN [Concomitant]
     Active Substance: DOXORUBICIN HYDROCHLORIDE
  6. CYTOXAN [Concomitant]
     Active Substance: CYCLOPHOSPHAMIDE
  7. TAXOTERE [Concomitant]
     Active Substance: DOCETAXEL
  8. XELODA [Suspect]
     Active Substance: CAPECITABINE
     Indication: BREAST CANCER FEMALE
     Route: 065

REACTIONS (7)
  - Pleural effusion [Unknown]
  - Metastases to liver [Unknown]
  - Abdominal pain upper [Unknown]
  - Off label use [Unknown]
  - Metastases to bone [Unknown]
  - Back pain [Unknown]
  - Metastases to lung [Unknown]

NARRATIVE: CASE EVENT DATE: 200609
